FAERS Safety Report 7691456-X (Version None)
Quarter: 2011Q3

REPORT INFORMATION
  Report Type: 
  Country: None (occurrence: None)
  Receive Date: 20110818
  Receipt Date: 20110815
  Transmission Date: 20111222
  Serious: Yes (Death, Other)
  Sender: FDA-Public Use
  Company Number: PHHY2011TR73306

PATIENT
  Age: 21 Year
  Sex: Female

DRUGS (1)
  1. EXJADE [Suspect]
     Indication: THALASSAEMIA BETA
     Dosage: 1500 MG, UNK
     Route: 065
     Dates: start: 20080101, end: 20110812

REACTIONS (2)
  - CARDIAC FAILURE [None]
  - DEATH [None]
